FAERS Safety Report 23403793 (Version 1)
Quarter: 2024Q1

REPORT INFORMATION
  Report Type: Spontaneous
  Country: PR (occurrence: PR)
  Receive Date: 20240116
  Receipt Date: 20240116
  Transmission Date: 20240410
  Serious: Yes (Other)
  Sender: FDA-Public Use
  Company Number: PR-SUN PHARMACEUTICAL INDUSTRIES LTD-2024RR-427085

PATIENT
  Age: 18 Year
  Sex: Male

DRUGS (4)
  1. DICLOFENAC [Suspect]
     Active Substance: DICLOFENAC
     Indication: Acne conglobata
     Dosage: UNK, DAILY
     Route: 065
  2. ISOTRETINOIN [Suspect]
     Active Substance: ISOTRETINOIN
     Indication: Acne conglobata
     Dosage: 60 MILLIGRAM, DAILY
     Route: 065
  3. MINOCYCLINE [Suspect]
     Active Substance: MINOCYCLINE HYDROCHLORIDE
     Indication: Acne conglobata
     Dosage: 100 MILLIGRAM, DAILY
     Route: 065
  4. TRIAMCINOLONE [Suspect]
     Active Substance: TRIAMCINOLONE
     Indication: Acne conglobata
     Dosage: UNK
     Route: 026

REACTIONS (3)
  - Blood triglycerides increased [Unknown]
  - Therapeutic product effect incomplete [Unknown]
  - Disease recurrence [Unknown]
